FAERS Safety Report 6183281-6 (Version None)
Quarter: 2009Q2

REPORT INFORMATION
  Report Type: 
  Country: None (occurrence: None)
  Receive Date: 20090507
  Receipt Date: 20090416
  Transmission Date: 20091009
  Serious: Yes (Other)
  Sender: FDA-Public Use
  Company Number: PHHY2009US14527

PATIENT
  Age: 43 Year
  Sex: Female
  Weight: 77 kg

DRUGS (7)
  1. OCTREOTIDE ACETATE [Suspect]
     Indication: CARCINOID TUMOUR
     Route: 030
  2. OCTREOTIDE ACETATE [Suspect]
     Dosage: 25 UG/H
     Route: 042
  3. OCTREOTIDE ACETATE [Suspect]
     Dosage: 150 UG EVERY 8 H
     Route: 058
  4. RANITIDINE [Concomitant]
  5. DIPHENHYDRAMINE HCL [Concomitant]
  6. FENTANYL [Concomitant]
     Route: 037
  7. BUPIVACAINE [Concomitant]

REACTIONS (7)
  - ABDOMINAL PAIN [None]
  - DIARRHOEA [None]
  - DRUG EXPOSURE DURING PREGNANCY [None]
  - DYSPNOEA EXERTIONAL [None]
  - FLUSHING [None]
  - NORMAL NEWBORN [None]
  - WHEEZING [None]
